FAERS Safety Report 18868906 (Version 2)
Quarter: 2021Q1

REPORT INFORMATION
  Report Type: Spontaneous
  Country: DE (occurrence: DE)
  Receive Date: 20210209
  Receipt Date: 20210305
  Transmission Date: 20210420
  Serious: Yes (Hospitalization)
  Sender: FDA-Public Use
  Company Number: DE-PFIZER INC-2021109717

PATIENT
  Age: 81 Year
  Sex: Male

DRUGS (1)
  1. LANTAREL [Suspect]
     Active Substance: METHOTREXATE SODIUM
     Dosage: 15 MG, WEEKLY
     Route: 058

REACTIONS (3)
  - Oesophageal disorder [Unknown]
  - Gastritis erosive [Unknown]
  - Abdominal pain lower [Unknown]
